FAERS Safety Report 9001419 (Version 1)
Quarter: 2013Q1

REPORT INFORMATION
  Report Type: Report from Study
  Country: DE (occurrence: DE)
  Receive Date: 20130107
  Receipt Date: 20130107
  Transmission Date: 20140127
  Serious: Yes (Other)
  Sender: FDA-Public Use
  Company Number: DE-ROCHE-1177131

PATIENT
  Sex: Female

DRUGS (4)
  1. RANIBIZUMAB [Suspect]
     Indication: AGE-RELATED MACULAR DEGENERATION
     Route: 050
     Dates: start: 20120604
  2. RANIBIZUMAB [Suspect]
     Route: 050
     Dates: start: 20120702
  3. RANIBIZUMAB [Suspect]
     Route: 050
     Dates: start: 20121004
  4. RANIBIZUMAB [Suspect]
     Route: 050
     Dates: start: 20121029

REACTIONS (2)
  - Age-related macular degeneration [Unknown]
  - Inappropriate schedule of drug administration [Unknown]
